FAERS Safety Report 6252206-7 (Version None)
Quarter: 2009Q2

REPORT INFORMATION
  Report Type: 
  Country: None (occurrence: None)
  Receive Date: 20090629
  Receipt Date: 20090615
  Transmission Date: 20091009
  Serious: Yes (Hospitalization)
  Sender: FDA-Public Use
  Company Number: IDA-00221

PATIENT
  Sex: Female

DRUGS (3)
  1. AVLOCARDYL (PROPRANOLOL) [Suspect]
     Indication: HAEMANGIOMA
     Dosage: 1 DF Q12H / 1 DF Q12H ORAL
     Route: 048
     Dates: start: 20081031, end: 20090101
  2. AVLOCARDYL (PROPRANOLOL) [Suspect]
     Indication: HAEMANGIOMA
     Dosage: 1 DF Q12H / 1 DF Q12H ORAL
     Route: 048
     Dates: start: 20090101, end: 20090406
  3. FERROSTRANE (SODIUM FEREDETATE) [Concomitant]

REACTIONS (1)
  - PYELONEPHRITIS [None]
